FAERS Safety Report 11209079 (Version 3)
Quarter: 2015Q3

REPORT INFORMATION
  Report Type: Report from Study
  Country: US (occurrence: US)
  Receive Date: 20150622
  Receipt Date: 20150723
  Transmission Date: 20151125
  Serious: Yes (Hospitalization, Other)
  Sender: FDA-Public Use
  Company Number: US-JNJFOC-20150614482

PATIENT
  Sex: Male

DRUGS (32)
  1. IMBRUVICA [Suspect]
     Active Substance: IBRUTINIB
     Indication: MANTLE CELL LYMPHOMA
     Route: 048
     Dates: start: 201504
  2. MULTIVITAMINS [Concomitant]
     Active Substance: VITAMINS
  3. CALCIUM ACETATE. [Concomitant]
     Active Substance: CALCIUM ACETATE
  4. IMBRUVICA [Suspect]
     Active Substance: IBRUTINIB
     Indication: MANTLE CELL LYMPHOMA
     Route: 048
  5. FLOMAX [Concomitant]
     Active Substance: TAMSULOSIN HYDROCHLORIDE
  6. IMBRUVICA [Suspect]
     Active Substance: IBRUTINIB
     Indication: MANTLE CELL LYMPHOMA
     Route: 048
  7. CRESTOR [Concomitant]
     Active Substance: ROSUVASTATIN CALCIUM
  8. LISINOPRIL. [Concomitant]
     Active Substance: LISINOPRIL
  9. TAMSULOSIN [Concomitant]
     Active Substance: TAMSULOSIN
  10. CALCIUM [Concomitant]
     Active Substance: CALCIUM
  11. ALEVE [Concomitant]
     Active Substance: NAPROXEN SODIUM
  12. PRILOSEC [Concomitant]
     Active Substance: OMEPRAZOLE MAGNESIUM
  13. IMBRUVICA [Suspect]
     Active Substance: IBRUTINIB
     Indication: MANTLE CELL LYMPHOMA
     Route: 048
     Dates: start: 20131230, end: 20150618
  14. IMBRUVICA [Suspect]
     Active Substance: IBRUTINIB
     Indication: MANTLE CELL LYMPHOMA
     Route: 048
     Dates: start: 20150527, end: 20150618
  15. SPIRONOLACTONE. [Concomitant]
     Active Substance: SPIRONOLACTONE
  16. GLUCOSAMINE [Concomitant]
     Active Substance: GLUCOSAMINE
  17. ASPIRIN. [Concomitant]
     Active Substance: ASPIRIN
  18. VITAMIN D [Concomitant]
     Active Substance: CHOLECALCIFEROL
  19. FERROUS SULFATE [Concomitant]
     Active Substance: FERROUS SULFATE\FERROUS SULFATE, DRIED
  20. TYLENOL [Concomitant]
     Active Substance: ACETAMINOPHEN
  21. ZESTRIL [Concomitant]
     Active Substance: LISINOPRIL
  22. IMBRUVICA [Suspect]
     Active Substance: IBRUTINIB
     Indication: MANTLE CELL LYMPHOMA
     Route: 048
  23. FISH OIL [Concomitant]
     Active Substance: FISH OIL
  24. LASIX [Concomitant]
     Active Substance: FUROSEMIDE
  25. VITAMIN D3 [Concomitant]
     Active Substance: CHOLECALCIFEROL
  26. PRAVASTATIN SODIUM. [Concomitant]
     Active Substance: PRAVASTATIN SODIUM
  27. NITROSTAT [Concomitant]
     Active Substance: NITROGLYCERIN
  28. OMEPRAZOLE. [Concomitant]
     Active Substance: OMEPRAZOLE
  29. TRAMADOL. [Concomitant]
     Active Substance: TRAMADOL
  30. VITAMIN C [Concomitant]
     Active Substance: ASCORBIC ACID
  31. METOPROLOL TARTRATE. [Concomitant]
     Active Substance: METOPROLOL TARTRATE
  32. SAW PALMETTO [Concomitant]
     Active Substance: SAW PALMETTO

REACTIONS (19)
  - Weight decreased [Unknown]
  - Blood magnesium decreased [Recovering/Resolving]
  - Stomatitis [Not Recovered/Not Resolved]
  - Fatigue [Unknown]
  - Cardiac failure congestive [Not Recovered/Not Resolved]
  - Supraventricular tachycardia [Recovered/Resolved]
  - Pneumonia [Not Recovered/Not Resolved]
  - Hypoalbuminaemia [Unknown]
  - Decreased appetite [Unknown]
  - Anaemia of chronic disease [Recovering/Resolving]
  - Hypokalaemia [Recovering/Resolving]
  - Hypotension [Recovered/Resolved]
  - Benign prostatic hyperplasia [Unknown]
  - Diarrhoea [Unknown]
  - Hypocalcaemia [Recovering/Resolving]
  - Pleural effusion [Unknown]
  - Cough [Not Recovered/Not Resolved]
  - Infection [Unknown]
  - Leukopenia [Unknown]

NARRATIVE: CASE EVENT DATE: 2015
